FAERS Safety Report 6585041-0 (Version None)
Quarter: 2010Q1

REPORT INFORMATION
  Report Type: 
  Country: None (occurrence: None)
  Receive Date: 20100217
  Receipt Date: 20100209
  Transmission Date: 20100710
  Serious: Yes (Life-Threatening, Disabling)
  Sender: FDA-Public Use
  Company Number: JP-ROCHE-668557

PATIENT
  Sex: Female
  Weight: 54 kg

DRUGS (10)
  1. TOCILIZUMAB [Suspect]
     Indication: RHEUMATOID ARTHRITIS
     Route: 041
     Dates: start: 20090501, end: 20090501
  2. TOCILIZUMAB [Suspect]
     Route: 041
     Dates: start: 20090522, end: 20090522
  3. TOCILIZUMAB [Suspect]
     Route: 041
     Dates: start: 20090619, end: 20090619
  4. TOCILIZUMAB [Suspect]
     Route: 041
     Dates: start: 20090717, end: 20090717
  5. TOCILIZUMAB [Suspect]
     Route: 041
     Dates: start: 20090821, end: 20090821
  6. TOCILIZUMAB [Suspect]
     Route: 041
     Dates: start: 20090918, end: 20090918
  7. TOCILIZUMAB [Suspect]
     Route: 041
     Dates: start: 20091016, end: 20091016
  8. RIMATIL [Concomitant]
     Route: 048
  9. PREDNISOLONE [Concomitant]
     Dosage: DOSE FORM: PERORAL AGENT
     Route: 048
     Dates: end: 20090717
  10. SELBEX [Concomitant]
     Dosage: FORM:  PERORAL AGENT
     Route: 048

REACTIONS (2)
  - DISSEMINATED INTRAVASCULAR COAGULATION [None]
  - POST PROCEDURAL INFECTION [None]
